FAERS Safety Report 7511583-7 (Version None)
Quarter: 2011Q2

REPORT INFORMATION
  Report Type: 
  Country: None (occurrence: None)
  Receive Date: 20110531
  Receipt Date: 20110525
  Transmission Date: 20111010
  Serious: Yes (Death, Life-Threatening, Hospitalization, Other)
  Sender: FDA-Public Use
  Company Number: JP-PFIZER INC-2010083645

PATIENT
  Age: 57 Year
  Sex: Female
  Weight: 57 kg

DRUGS (13)
  1. ALDACTONE [Concomitant]
     Indication: PULMONARY HYPERTENSION
     Dosage: UNK
     Route: 048
  2. LASIX [Concomitant]
     Indication: PULMONARY HYPERTENSION
     Dosage: UNK
     Route: 048
  3. MAGNESIUM OXIDE [Concomitant]
     Dosage: UNK
     Route: 048
     Dates: start: 20100421
  4. CARVEDILOL [Concomitant]
     Indication: PULMONARY HYPERTENSION
     Dosage: UNK
     Route: 048
  5. VERAPAMIL HCL [Concomitant]
     Dosage: UNK
     Route: 048
     Dates: start: 20091027
  6. BERAPROST SODIUM [Concomitant]
     Indication: PULMONARY HYPERTENSION
     Dosage: UNK
     Route: 048
     Dates: start: 20100202
  7. LANSOPRAZOLE [Concomitant]
     Dosage: UNK
     Route: 048
  8. LENDORMIN [Concomitant]
     Dosage: UNK
     Route: 048
     Dates: start: 20100127
  9. TRICHLORMETHIAZIDE [Concomitant]
     Indication: PULMONARY HYPERTENSION
     Dosage: UNK
     Route: 048
     Dates: start: 20100226
  10. TRACLEER [Concomitant]
     Indication: PULMONARY HYPERTENSION
     Dosage: UNK
     Route: 048
     Dates: start: 20100309
  11. SILDENAFIL CITRATE [Suspect]
     Indication: PULMONARY ARTERIAL HYPERTENSION
     Dosage: 20 MG, 3X/DAY
     Dates: start: 20090612
  12. WARFARIN [Concomitant]
     Indication: PULMONARY HYPERTENSION
     Dosage: UNK
     Route: 048
  13. PURSENNID [Concomitant]
     Dosage: UNK
     Route: 048
     Dates: start: 20100317

REACTIONS (2)
  - BREAST CANCER [None]
  - DEATH [None]
